FAERS Safety Report 9940816 (Version 1)
Quarter: 2014Q1

REPORT INFORMATION
  Report Type: Spontaneous
  Country: US (occurrence: US)
  Receive Date: 20140303
  Receipt Date: 20140303
  Transmission Date: 20141002
  Serious: No
  Sender: FDA-Public Use
  Company Number: US-MYLANLABS-2013S1027824

PATIENT
  Sex: Female

DRUGS (1)
  1. MONTELUKAST SODIUM TABLETS [Suspect]
     Indication: HYPERSENSITIVITY
     Route: 048
     Dates: start: 201311, end: 201311

REACTIONS (5)
  - Dizziness [Recovered/Resolved]
  - Fatigue [Recovered/Resolved]
  - Irritability [Recovered/Resolved]
  - Nausea [Recovered/Resolved]
  - Restlessness [Recovered/Resolved]
